FAERS Safety Report 7609653-8 (Version None)
Quarter: 2011Q3

REPORT INFORMATION
  Report Type: 
  Country: None (occurrence: None)
  Receive Date: 20110714
  Receipt Date: 20110708
  Transmission Date: 20111222
  Serious: Yes (Hospitalization)
  Sender: FDA-Public Use
  Company Number: JP-PFIZER INC-2011154982

PATIENT
  Age: 40 Year
  Sex: Female

DRUGS (2)
  1. LIPITOR [Suspect]
     Route: 048
  2. ZITHROMAX [Suspect]
     Dosage: UNK
     Route: 048
     Dates: start: 20110702

REACTIONS (4)
  - SKIN EROSION [None]
  - RHABDOMYOLYSIS [None]
  - BLISTER [None]
  - RESPIRATORY TRACT OEDEMA [None]
